FAERS Safety Report 9387186 (Version 2)
Quarter: 2013Q3

REPORT INFORMATION
  Report Type: Report from Study
  Country: AU (occurrence: AU)
  Receive Date: 20130708
  Receipt Date: 20130719
  Transmission Date: 20140515
  Serious: Yes (Death)
  Sender: FDA-Public Use
  Company Number: AU-ROCHE-1245912

PATIENT
  Age: 9 Year
  Sex: Male
  Weight: 42 kg

DRUGS (2)
  1. AVASTIN [Suspect]
     Indication: GLIOMA
     Route: 042
     Dates: start: 20130418, end: 20130612
  2. TEMOZOLOMIDE [Concomitant]
     Indication: GLIOBLASTOMA
     Dosage: DAILY FOR 6 WEEKS
     Route: 048
     Dates: start: 20130418, end: 20130529

REACTIONS (1)
  - Neoplasm progression [Fatal]
